FAERS Safety Report 7007846-4 (Version None)
Quarter: 2010Q3

REPORT INFORMATION
  Report Type: 
  Country: None (occurrence: None)
  Receive Date: 20100922
  Receipt Date: 20100913
  Transmission Date: 20110219
  Serious: Yes (Hospitalization)
  Sender: FDA-Public Use
  Company Number: US-ASTRAZENECA-2010SE42976

PATIENT
  Age: 71 Year
  Sex: Female

DRUGS (3)
  1. ATENOLOL [Suspect]
     Route: 065
  2. APIXABAN/ WARFARIN SODIUM /PLACEBO [Suspect]
     Indication: THROMBOSIS PROPHYLAXIS
     Route: 048
     Dates: start: 20081111, end: 20100622
  3. NORVASC [Concomitant]
     Route: 065
     Dates: end: 20100629

REACTIONS (3)
  - ANGINA PECTORIS [None]
  - DYSPNOEA [None]
  - OVERDOSE [None]
